FAERS Safety Report 18375299 (Version 2)
Quarter: 2020Q4

REPORT INFORMATION
  Report Type: Spontaneous
  Country: DE (occurrence: DE)
  Receive Date: 20201013
  Receipt Date: 20201124
  Transmission Date: 20210114
  Serious: Yes (Other)
  Sender: FDA-Public Use
  Company Number: DE-DEXPHARM-20200918

PATIENT
  Age: 52 Year
  Sex: Female
  Weight: 63 kg

DRUGS (6)
  1. VENLAFAXIN HEUMANN 150 MG HARTKAPSELN, RETARDIERT [Suspect]
     Active Substance: VENLAFAXINE HYDROCHLORIDE
     Indication: DEPRESSION
     Dates: start: 20200315, end: 20200728
  2. VENLAFAXINE [Suspect]
     Active Substance: VENLAFAXINE HYDROCHLORIDE
     Indication: DEPRESSION
     Dosage: DOSAGE BETWEEN 112.5MG AND 225 MG
     Dates: start: 20190428, end: 20200223
  3. VENLAFAXIN-NEURAXPHARM 37.5 MG RETARD HARTKAPSELN, RETARDIERT [Suspect]
     Active Substance: VENLAFAXINE HYDROCHLORIDE
     Indication: DEPRESSION
     Dates: start: 20200813, end: 20200827
  4. VENLAFAXIN-NEURAXPHARM 75 MG RETARD HARTKAPSELN [Suspect]
     Active Substance: VENLAFAXINE HYDROCHLORIDE
     Indication: DEPRESSION
     Dates: start: 20200729, end: 20200812
  5. VENLAFAXIN HEUMANN 37.5 MG TABLETTEN [Suspect]
     Active Substance: VENLAFAXINE HYDROCHLORIDE
     Indication: DEPRESSION
     Dosage: FROM 37.5MG TO MAX. 225MG
     Route: 048
     Dates: start: 20190123, end: 20190201
  6. VENLAFAXIN HEUMANN 75 MG TABLETTEN [Suspect]
     Active Substance: VENLAFAXINE HYDROCHLORIDE
     Indication: DEPRESSION
     Dates: start: 20190202, end: 20190427

REACTIONS (19)
  - Menorrhagia [Not Recovered/Not Resolved]
  - Withdrawal syndrome [Unknown]
  - Abnormal faeces [Recovered/Resolved]
  - Dysaesthesia [Recovered/Resolved]
  - Electrocardiogram QT prolonged [Not Recovered/Not Resolved]
  - Amenorrhoea [Not Recovered/Not Resolved]
  - Feeling of body temperature change [Recovered/Resolved]
  - Illusion [Recovered/Resolved]
  - Blood cholesterol increased [Recovered/Resolved]
  - Loss of personal independence in daily activities [Unknown]
  - Fatigue [Unknown]
  - Nightmare [Recovered/Resolved]
  - Anorgasmia [Recovered/Resolved]
  - Diarrhoea [Recovered/Resolved]
  - Menstruation irregular [Unknown]
  - Loss of libido [Recovered/Resolved]
  - Dizziness [Recovered/Resolved]
  - Decreased appetite [Recovered/Resolved]
  - Somnolence [Recovered/Resolved]

NARRATIVE: CASE EVENT DATE: 2019
